FAERS Safety Report 6419342-3 (Version None)
Quarter: 2009Q4

REPORT INFORMATION
  Report Type: 
  Country: None (occurrence: None)
  Receive Date: 20091029
  Receipt Date: 20091022
  Transmission Date: 20100525
  Serious: Yes (Other)
  Sender: FDA-Public Use
  Company Number: DE-BAYER-200935595GPV

PATIENT

DRUGS (1)
  1. VARDENAFIL [Suspect]
     Indication: DRUG USE FOR UNKNOWN INDICATION

REACTIONS (3)
  - BLINDNESS [None]
  - RETINAL ARTERY OCCLUSION [None]
  - VISUAL ACUITY REDUCED [None]
